FAERS Safety Report 22524572 (Version 10)
Quarter: 2023Q4

REPORT INFORMATION
  Report Type: Spontaneous
  Country: US (occurrence: US)
  Receive Date: 20230606
  Receipt Date: 20231107
  Transmission Date: 20240110
  Serious: No
  Sender: FDA-Public Use
  Company Number: US-PFIZER INC-202300209217

PATIENT
  Age: 13 Year
  Sex: Female
  Weight: 63.8 kg

DRUGS (3)
  1. GENOTROPIN [Suspect]
     Active Substance: SOMATROPIN
     Dosage: 1.2 MG, DAILY
     Dates: start: 20230421
  2. GENOTROPIN [Suspect]
     Active Substance: SOMATROPIN
     Dosage: 0.2 MG
  3. GENOTROPIN [Suspect]
     Active Substance: SOMATROPIN
     Dosage: UNK

REACTIONS (7)
  - Drug dose omission by device [Unknown]
  - Expired device used [Unknown]
  - Poor quality device used [Unknown]
  - Device power source issue [Unknown]
  - Device information output issue [Unknown]
  - Device delivery system issue [Unknown]
  - Liquid product physical issue [Unknown]
